FAERS Safety Report 8010371-5 (Version None)
Quarter: 2011Q4

REPORT INFORMATION
  Report Type: 
  Country: None (occurrence: None)
  Receive Date: 20111228
  Receipt Date: 20111215
  Transmission Date: 20120403
  Serious: Yes (Hospitalization, Other)
  Sender: FDA-Public Use
  Company Number: US-ELI_LILLY_AND_COMPANY-US201105008363

PATIENT
  Sex: Female

DRUGS (9)
  1. PLAVIX [Concomitant]
  2. FORTEO [Suspect]
     Dosage: 20 UG, QD
     Route: 065
     Dates: end: 20111213
  3. KEPPRA [Concomitant]
     Dosage: 500 MG, BID
  4. FORTEO [Suspect]
     Dosage: 20 UG, QD
     Route: 065
  5. FORTEO [Suspect]
     Indication: OSTEOPOROSIS
     Dosage: 20 UG, QD
     Route: 065
  6. VITAMINS NOS [Concomitant]
  7. FORTEO [Suspect]
     Dosage: 20 UG, QD
     Route: 065
  8. FORTEO [Suspect]
     Dosage: 20 UG, QD
     Route: 065
     Dates: end: 20110725
  9. ASPIRIN [Concomitant]

REACTIONS (5)
  - CONTUSION [None]
  - DRUG DOSE OMISSION [None]
  - INTRACRANIAL ANEURYSM [None]
  - CONVULSION [None]
  - LOSS OF CONSCIOUSNESS [None]
